FAERS Safety Report 9731890 (Version 1)
Quarter: 2013Q4

REPORT INFORMATION
  Report Type: Spontaneous
  Country: US (occurrence: None)
  Receive Date: 20131204
  Receipt Date: 20131204
  Transmission Date: 20140711
  Serious: Yes (Other)
  Sender: FDA-Public Use
  Company Number: None

PATIENT
  Age: 64 Year
  Sex: Female
  Weight: 99.79 kg

DRUGS (12)
  1. HYDRALAZINE [Suspect]
     Indication: HYPERTENSION
     Route: 048
     Dates: start: 20130910, end: 20130923
  2. CLONIDINE [Concomitant]
  3. LISINOPRIL/HCTZ [Concomitant]
  4. NORVASC [Concomitant]
  5. KLOR-CON [Concomitant]
  6. GABAPENTIN [Concomitant]
  7. LIPITOR [Concomitant]
  8. ASPIRIN [Concomitant]
  9. FISH OIL [Concomitant]
  10. VITAMINS [Concomitant]
  11. CINNAMON [Concomitant]
  12. REFRESH [Concomitant]

REACTIONS (2)
  - Dizziness [None]
  - Headache [None]
